FAERS Safety Report 23815933 (Version 5)
Quarter: 2024Q3

REPORT INFORMATION
  Report Type: Report from Study
  Country: ES (occurrence: ES)
  Receive Date: 20240503
  Receipt Date: 20240813
  Transmission Date: 20241017
  Serious: Yes (Other)
  Sender: ABBVIE
  Company Number: ES-ABBVIE-5740209

PATIENT
  Age: 72 Year
  Sex: Male

DRUGS (10)
  1. CARBIDOPA\LEVODOPA [Suspect]
     Active Substance: CARBIDOPA\LEVODOPA
     Indication: Parkinson^s disease
     Dosage: 20MG/ML PLUS 5MG/ML?16 HOURS A DAY
     Route: 050
     Dates: start: 20220309
  2. CARBIDOPA\LEVODOPA [Suspect]
     Active Substance: CARBIDOPA\LEVODOPA
  3. Gelafundin [Concomitant]
     Indication: Faeces discoloured
  4. AMANTADINE [Concomitant]
     Active Substance: AMANTADINE
     Indication: Product used for unknown indication
  5. CHOLECALCIFEROL [Concomitant]
     Active Substance: CHOLECALCIFEROL
     Indication: Product used for unknown indication
     Route: 048
  6. OMEPRAZOLE [Concomitant]
     Active Substance: OMEPRAZOLE
     Indication: Product used for unknown indication
  7. TAMSULOSIN HYDROCHLORIDE [Concomitant]
     Active Substance: TAMSULOSIN HYDROCHLORIDE
     Indication: Product used for unknown indication
     Dosage: DOSE 0.4 MG
  8. SIMVASTATIN [Concomitant]
     Active Substance: SIMVASTATIN
     Indication: Product used for unknown indication
  9. Miol [Concomitant]
     Indication: Product used for unknown indication
  10. MIRABEGRON [Concomitant]
     Active Substance: MIRABEGRON
     Indication: Product used for unknown indication

REACTIONS (17)
  - Arterial haemorrhage [Recovered/Resolved]
  - Rectal haemorrhage [Unknown]
  - Hypotension [Unknown]
  - Nausea [Unknown]
  - Loss of consciousness [Unknown]
  - Anaemia [Unknown]
  - Acute kidney injury [Recovered/Resolved]
  - Faeces discoloured [Recovered/Resolved]
  - Urosepsis [Unknown]
  - Weight decreased [Recovering/Resolving]
  - Vomiting [Unknown]
  - Coagulopathy [Recovered/Resolved]
  - Intestinal haemorrhage [Unknown]
  - Muscle atrophy [Recovering/Resolving]
  - Abdominal pain [Unknown]
  - Malaise [Unknown]
  - Mobility decreased [Recovering/Resolving]

NARRATIVE: CASE EVENT DATE: 20230301
